FAERS Safety Report 5604600-2 (Version None)
Quarter: 2008Q1

REPORT INFORMATION
  Report Type: 
  Country: None (occurrence: None)
  Receive Date: 20080123
  Receipt Date: 20080114
  Transmission Date: 20080703
  Serious: Yes (Other)
  Sender: FDA-Public Use
  Company Number: 2008001333

PATIENT
  Age: 52 Year
  Sex: Female
  Weight: 54.4316 kg

DRUGS (3)
  1. LISTERINE WHITENING PRE-BRUSH RINSE (NO ACTIVE INGREDIENT) [Suspect]
     Indication: DENTAL CARE
     Dosage: HALF LID ( 4 TSP ) 2 DAILY (2 IN 1 D), ORAL
     Route: 048
     Dates: start: 20080109, end: 20080113
  2. CENTRUM SILVER (ASCORBIC ACID, CALCIUM, MINERALS NOS, RETINOL, TOCOPHE [Concomitant]
  3. OYSTER SHELL CALCIUM (CALCIUM CARBONATE) [Concomitant]

REACTIONS (2)
  - TOOTH DISORDER [None]
  - TOOTH EROSION [None]
